FAERS Safety Report 5352979-1 (Version None)
Quarter: 2007Q2

REPORT INFORMATION
  Report Type: 
  Country: None (occurrence: None)
  Receive Date: 20070607
  Receipt Date: 20070531
  Transmission Date: 20071010
  Serious: Yes (Hospitalization, Other)
  Sender: FDA-Public Use
  Company Number: 163-20785-07011064

PATIENT
  Age: 55 Year
  Sex: Male

DRUGS (22)
  1. THALOMIDE (THALIDOMIDE) (CAPSULES) [Suspect]
     Indication: MULTIPLE MYELOMA
     Dosage: 100 MG, DAILY, ORAL
     Route: 048
     Dates: start: 20061006, end: 20061201
  2. BORTEZOMIB (BORTEZOMIB) [Suspect]
     Indication: MULTIPLE MYELOMA
     Dates: start: 20061006
  3. DEXAMETHASONE TAB [Suspect]
     Indication: MULTIPLE MYELOMA
     Dosage: 20 MG, DAILY X 4 DAYS/21 PER DAYS, ORAL
     Route: 048
     Dates: start: 20061006
  4. ZOFRAN [Concomitant]
  5. TYLENOL [Concomitant]
  6. FERREX (POLYSACCHARIDE-IRON COMPLEX) [Concomitant]
  7. CALCIUM (CALCIUM) [Concomitant]
  8. FOLIC ACID [Concomitant]
  9. KEPRA (LEVETIRACETAM) [Concomitant]
  10. ASCORBIC ACID [Concomitant]
  11. PROPECIA [Concomitant]
  12. MAGNESIUM (MAGNESIUM) [Concomitant]
  13. ACYCLOVIR [Concomitant]
  14. ASPIRIN [Concomitant]
  15. PROTONIX [Concomitant]
  16. DAPSONE [Concomitant]
  17. CLOSTRIDIA [Concomitant]
  18. AREDIA [Concomitant]
  19. ARANESP [Concomitant]
  20. LASIX [Concomitant]
  21. MORPHINE [Concomitant]
  22. CARDENE [Concomitant]

REACTIONS (8)
  - APHASIA [None]
  - BRAIN OEDEMA [None]
  - CONSTIPATION [None]
  - DEPRESSION [None]
  - HYPERTENSION [None]
  - MENINGIOMA [None]
  - POST PROCEDURAL COMPLICATION [None]
  - RESPIRATORY FAILURE [None]
